FAERS Safety Report 8177097-9 (Version None)
Quarter: 2012Q1

REPORT INFORMATION
  Report Type: 
  Country: None (occurrence: None)
  Receive Date: 20120301
  Receipt Date: 20120222
  Transmission Date: 20120608
  Serious: Yes (Disabling, Other)
  Sender: FDA-Public Use
  Company Number: US-GLAXOSMITHKLINE-A0957195A

PATIENT
  Age: 64 Year
  Sex: Male
  Weight: 68.2 kg

DRUGS (8)
  1. HYCODAN [Concomitant]
     Indication: COUGH
     Route: 048
     Dates: start: 20111007, end: 20111116
  2. FIBER [Concomitant]
     Dosage: 1TAB AS REQUIRED
     Route: 048
  3. DIOVAN [Concomitant]
     Indication: HYPERTENSION
     Dosage: 80MG PER DAY
     Route: 048
     Dates: start: 20111011
  4. QVAR 40 [Concomitant]
     Indication: COUGH
     Dosage: 2PUFF TWICE PER DAY
     Route: 055
     Dates: start: 20111007, end: 20111116
  5. OXYCODONE HCL [Concomitant]
     Indication: PAIN
     Dosage: 5MG AS REQUIRED
     Route: 048
     Dates: start: 20111109
  6. ALBUTEROL [Concomitant]
     Indication: WHEEZING
     Dosage: 2PUFF TWICE PER DAY
     Route: 055
     Dates: start: 20111007, end: 20120104
  7. VOTRIENT [Suspect]
     Indication: RENAL CELL CARCINOMA
     Dosage: 800MG PER DAY
     Route: 048
     Dates: start: 20111015
  8. TESSALON [Concomitant]
     Indication: COUGH
     Route: 048
     Dates: start: 20110309

REACTIONS (4)
  - VISUAL IMPAIRMENT [None]
  - RETINAL DETACHMENT [None]
  - VISUAL FIELD DEFECT [None]
  - VITRECTOMY [None]
